FAERS Safety Report 4767517-1 (Version None)
Quarter: 2005Q3

REPORT INFORMATION
  Report Type: 
  Country: None (occurrence: None)
  Receive Date: 20050912
  Receipt Date: 20050830
  Transmission Date: 20060218
  Serious: Yes (Other)
  Sender: FDA-Public Use
  Company Number: 2005121898

PATIENT
  Age: 28 Year
  Sex: Male
  Weight: 56.6996 kg

DRUGS (1)
  1. BENADRYL [Suspect]
     Dosage: 30 KAPSEALS IN A 3 DAY PERIOD, ORAL
     Route: 048
     Dates: start: 20050827, end: 20050829

REACTIONS (2)
  - CHEST PAIN [None]
  - DYSPNOEA [None]
